FAERS Safety Report 4947726-9 (Version None)
Quarter: 2006Q1

REPORT INFORMATION
  Report Type: 
  Country: None (occurrence: None)
  Receive Date: 20060314
  Receipt Date: 20060227
  Transmission Date: 20060701
  Serious: Yes (Hospitalization, Disabling)
  Sender: FDA-Public Use
  Company Number: 006722

PATIENT
  Age: 50 Year
  Sex: Female
  Weight: 83.9 kg

DRUGS (1)
  1. METHOTREXATE [Suspect]
     Indication: PSORIASIS
     Dosage: 3 TABLET, SINGLE, ORAL
     Route: 048
     Dates: start: 20040324, end: 20040324

REACTIONS (9)
  - ABASIA [None]
  - ARTHRALGIA [None]
  - BLISTER [None]
  - FINGER DEFORMITY [None]
  - JOINT STIFFNESS [None]
  - MUSCLE SPASMS [None]
  - PAIN [None]
  - POLYARTHRITIS [None]
  - PSORIATIC ARTHROPATHY [None]
